FAERS Safety Report 12543489 (Version 1)
Quarter: 2016Q3

REPORT INFORMATION
  Report Type: Spontaneous
  Country: US (occurrence: None)
  Receive Date: 20160708
  Receipt Date: 20160708
  Transmission Date: 20161109
  Serious: No
  Sender: FDA-Public Use
  Company Number: None

PATIENT
  Age: 70 Year
  Sex: Female
  Weight: 81.65 kg

DRUGS (2)
  1. RITEAID VAGICAINE CREME MAXIMUM [Suspect]
     Active Substance: BENZOCAINE\RESORCINOL
     Indication: VULVOVAGINAL PRURITUS
     Dosage: 1 INCH OF CREAM EVERY 6 HOURS APPLIED TO A SURFACE, USUALLY THE SKIN
     Route: 061
     Dates: start: 20160706, end: 20160707
  2. RITEAID VAGICAINE CREME MAXIMUM [Suspect]
     Active Substance: BENZOCAINE\RESORCINOL
     Indication: ANAL PRURITUS
     Dosage: 1 INCH OF CREAM EVERY 6 HOURS APPLIED TO A SURFACE, USUALLY THE SKIN
     Route: 061
     Dates: start: 20160706, end: 20160707

REACTIONS (1)
  - Application site pain [None]

NARRATIVE: CASE EVENT DATE: 20160706
